FAERS Safety Report 11590749 (Version 1)
Quarter: 2015Q4

REPORT INFORMATION
  Report Type: Spontaneous
  Country: US (occurrence: US)
  Receive Date: 20151002
  Receipt Date: 20151002
  Transmission Date: 20160304
  Serious: Yes (Life-Threatening, Hospitalization, Other)
  Sender: FDA-Public Use
  Company Number: US-PRINSTON PHARMACEUTICAL INC.-2015PRN00077

PATIENT
  Age: 15 Month
  Sex: Female

DRUGS (1)
  1. BUPROPION HYDROCHLORIDE. [Suspect]
     Active Substance: BUPROPION HYDROCHLORIDE
     Route: 048

REACTIONS (14)
  - Blindness cortical [Unknown]
  - Microcytic anaemia [None]
  - Accidental overdose [Recovered/Resolved]
  - Partial seizures [Recovered/Resolved with Sequelae]
  - Metabolic acidosis [Recovered/Resolved]
  - Lactic acidosis [None]
  - Accidental exposure to product by child [Recovered/Resolved]
  - Status epilepticus [Recovered/Resolved]
  - Aspartate aminotransferase increased [None]
  - Alanine aminotransferase increased [None]
  - Cardio-respiratory arrest [Recovered/Resolved]
  - Hepatic enzyme increased [Unknown]
  - Hypoxic-ischaemic encephalopathy [Recovered/Resolved with Sequelae]
  - Paresis [Unknown]
